FAERS Safety Report 4844178-4 (Version None)
Quarter: 2005Q4

REPORT INFORMATION
  Report Type: 
  Country: None (occurrence: None)
  Receive Date: 20051202
  Receipt Date: 20051128
  Transmission Date: 20060501
  Serious: Yes (Death)
  Sender: FDA-Public Use
  Company Number: PHBS2005JP17567

PATIENT
  Age: 48 Year
  Sex: Female

DRUGS (1)
  1. TEGRETOL [Suspect]
     Route: 048
     Dates: start: 20030301, end: 20030301

REACTIONS (2)
  - HYPERSENSITIVITY [None]
  - MULTI-ORGAN FAILURE [None]
